FAERS Safety Report 7501566-5 (Version None)
Quarter: 2011Q2

REPORT INFORMATION
  Report Type: 
  Country: None (occurrence: None)
  Receive Date: 20110524
  Receipt Date: 20110513
  Transmission Date: 20111010
  Serious: Yes (Other)
  Sender: FDA-Public Use
  Company Number: US-AMGEN-USASP2011025033

PATIENT
  Sex: Male

DRUGS (1)
  1. ENBREL [Suspect]
     Indication: ANKYLOSING SPONDYLITIS
     Dosage: 50 MG, QWK
     Dates: start: 20110422

REACTIONS (7)
  - INSOMNIA [None]
  - SINUSITIS BACTERIAL [None]
  - DEPRESSION [None]
  - ABDOMINAL PAIN [None]
  - MOOD SWINGS [None]
  - ABDOMINAL DISTENSION [None]
  - DECREASED APPETITE [None]
